FAERS Safety Report 6742790-9 (Version None)
Quarter: 2010Q2

REPORT INFORMATION
  Report Type: 
  Country: None (occurrence: None)
  Receive Date: 20100525
  Receipt Date: 20100513
  Transmission Date: 20101027
  Serious: Yes (Other)
  Sender: FDA-Public Use
  Company Number: 232710J09USA

PATIENT
  Age: 40 Year
  Sex: Female

DRUGS (6)
  1. REBIF [Suspect]
     Indication: MULTIPLE SCLEROSIS
     Dosage: 44 MCG, 3 IN 1 WK, SUBCUTANEOUS
     Route: 058
     Dates: start: 20081103, end: 20100201
  2. IBUPROFEN [Concomitant]
  3. UNSPECIFIED DEPRESSION MEDICATION (ANTIDEPRESSANTS) [Concomitant]
  4. ULTRAM [Concomitant]
  5. SOMA [Concomitant]
  6. UNSPECIFIED INCONTINENCE MEDICATION (ALL OTHER THERAPEUTIC PRODUCTS) [Concomitant]

REACTIONS (5)
  - AGGRESSION [None]
  - CONDITION AGGRAVATED [None]
  - DEPRESSION [None]
  - FIBROMYALGIA [None]
  - URINE OUTPUT DECREASED [None]
